FAERS Safety Report 7245639-3 (Version None)
Quarter: 2011Q1

REPORT INFORMATION
  Report Type: 
  Country: None (occurrence: None)
  Receive Date: 20110126
  Receipt Date: 20100429
  Transmission Date: 20110831
  Serious: No
  Sender: FDA-Public Use
  Company Number: US-BAUSCH-2010BL002270

PATIENT
  Age: 80 Year
  Sex: Female

DRUGS (2)
  1. NEOMYCIN AND POLYMXIN B SULFATES AND HYDROCORTISONE [Suspect]
     Indication: OFF LABEL USE
     Route: 047
     Dates: start: 20100410, end: 20100410
  2. NEOMYCIN AND POLYMXIN B SULFATES AND HYDROCORTISONE [Suspect]
     Indication: CORNEAL ABRASION
     Route: 047
     Dates: start: 20100410, end: 20100410

REACTIONS (2)
  - EYE IRRITATION [None]
  - INCORRECT ROUTE OF DRUG ADMINISTRATION [None]
